FAERS Safety Report 4331745-X (Version None)
Quarter: 2004Q1

REPORT INFORMATION
  Report Type: 
  Country: None (occurrence: None)
  Receive Date: 20040329
  Receipt Date: 20040311
  Transmission Date: 20041129
  Serious: Yes (Death, Hospitalization)
  Sender: FDA-Public Use
  Company Number: 2003EU006990

PATIENT
  Age: 6 Year
  Sex: Male

DRUGS (6)
  1. PROGRAF [Suspect]
     Indication: INTESTINAL TRANSPLANT
     Dosage: UNK, UNKNOWN/D; UNK
     Route: 065
  2. SIROLIMUS [Concomitant]
  3. METHYLPREDNISOLONE [Concomitant]
  4. SIMULECT [Concomitant]
  5. ... [Concomitant]
  6. AZATHIOPRINE [Concomitant]

REACTIONS (12)
  - DRUG HYPERSENSITIVITY [None]
  - ENCEPHALITIS [None]
  - EPIDERMAL NECROSIS [None]
  - EPSTEIN-BARR VIRUS INFECTION [None]
  - HEPATIC ENZYME INCREASED [None]
  - HEPATITIS A [None]
  - HUMAN HERPESVIRUS 6 INFECTION [None]
  - LEUKOENCEPHALOPATHY [None]
  - MULTI-ORGAN FAILURE [None]
  - PNEUMONITIS [None]
  - RENAL FAILURE [None]
  - TRANSPLANT REJECTION [None]
